FAERS Safety Report 20528682 (Version 1)
Quarter: 2022Q1

REPORT INFORMATION
  Report Type: Spontaneous
  Country: US (occurrence: US)
  Receive Date: 20220228
  Receipt Date: 20220228
  Transmission Date: 20220423
  Serious: No
  Sender: FDA-Public Use
  Company Number: US-PFIZER INC-2021329753

PATIENT
  Age: 67 Year
  Sex: Female
  Weight: 67.13 kg

DRUGS (2)
  1. XELJANZ XR [Suspect]
     Active Substance: TOFACITINIB CITRATE
     Indication: Rheumatoid arthritis
     Dosage: 11 MG
  2. XELJANZ XR [Suspect]
     Active Substance: TOFACITINIB CITRATE
     Indication: Sjogren^s syndrome
     Dosage: 10 MG, DAILY
     Dates: start: 20190418

REACTIONS (2)
  - Feeling abnormal [Unknown]
  - Biopsy liver [Unknown]

NARRATIVE: CASE EVENT DATE: 20210318
